FAERS Safety Report 17632348 (Version 1)
Quarter: 2020Q2

REPORT INFORMATION
  Report Type: Report from Study
  Country: AU (occurrence: AU)
  Receive Date: 20200406
  Receipt Date: 20200406
  Transmission Date: 20200713
  Serious: Yes (Hospitalization)
  Sender: FDA-Public Use
  Company Number: AU-IPSEN BIOPHARMACEUTICALS, INC.-2020-06613

PATIENT
  Age: 82 Year
  Sex: Male

DRUGS (1)
  1. SOMATULINE AUTOGEL [Suspect]
     Active Substance: LANREOTIDE ACETATE
     Indication: CARCINOID SYNDROME
     Dosage: DOSE NOT REPORTED
     Route: 058
     Dates: start: 20200307, end: 20200402

REACTIONS (6)
  - Faecaloma [Recovering/Resolving]
  - Injection site pain [Recovering/Resolving]
  - Vomiting [Recovering/Resolving]
  - Injection site hypoaesthesia [Recovering/Resolving]
  - Urinary retention [Recovering/Resolving]
  - Dyschezia [Recovering/Resolving]

NARRATIVE: CASE EVENT DATE: 202003
